FAERS Safety Report 23647786 (Version 1)
Quarter: 2024Q1

REPORT INFORMATION
  Report Type: Spontaneous
  Country: US (occurrence: US)
  Receive Date: 20240319
  Receipt Date: 20240319
  Transmission Date: 20240410
  Serious: No
  Sender: FDA-Public Use
  Company Number: US-002147023-NVSC2024US059088

PATIENT
  Age: 87 Year
  Sex: Female
  Weight: 70.31 kg

DRUGS (1)
  1. TABRECTA [Suspect]
     Active Substance: CAPMATINIB
     Indication: Non-small cell lung cancer
     Dosage: UNK, BID
     Route: 048
     Dates: start: 202311, end: 202403

REACTIONS (1)
  - Oedema [Not Recovered/Not Resolved]
